FAERS Safety Report 14385451 (Version 2)
Quarter: 2018Q3

REPORT INFORMATION
  Report Type: Spontaneous
  Country: US (occurrence: US)
  Receive Date: 20180115
  Receipt Date: 20180918
  Transmission Date: 20181010
  Serious: Yes (Other)
  Sender: FDA-Public Use
  Company Number: US-SA-2017SA060934

PATIENT
  Age: 45 Year
  Sex: Female
  Weight: 65.77 kg

DRUGS (5)
  1. DOCETAXEL. [Suspect]
     Active Substance: DOCETAXEL
     Indication: BREAST CANCER
     Dosage: 122 MG,Q3W
     Route: 042
     Dates: start: 20130404, end: 20130404
  2. DOCETAXEL. [Suspect]
     Active Substance: DOCETAXEL
     Dosage: UNK UNK,QCY
     Route: 042
     Dates: start: 20130411, end: 20130411
  3. CARBOPLATIN. [Concomitant]
     Active Substance: CARBOPLATIN
     Dosage: UNK UNK,QCY
     Route: 065
  4. DOCETAXEL. [Suspect]
     Active Substance: DOCETAXEL
     Dosage: 122 MG,Q3W
     Route: 042
     Dates: start: 20130722, end: 20130722
  5. PARAPLATIN [Concomitant]
     Active Substance: CARBOPLATIN
     Dosage: UNK UNK,QCY
     Route: 065

REACTIONS (10)
  - Injury [Unknown]
  - Anxiety [Unknown]
  - Hair texture abnormal [Unknown]
  - Psychological trauma [Unknown]
  - Alopecia [Recovering/Resolving]
  - Emotional distress [Unknown]
  - Impaired quality of life [Unknown]
  - Impaired work ability [Unknown]
  - Pain [Unknown]
  - Hair colour changes [Unknown]

NARRATIVE: CASE EVENT DATE: 20140101
